FAERS Safety Report 13087682 (Version 2)
Quarter: 2017Q1

REPORT INFORMATION
  Report Type: Spontaneous
  Country: US (occurrence: US)
  Receive Date: 20170105
  Receipt Date: 20170110
  Transmission Date: 20170428
  Serious: No
  Sender: FDA-Public Use
  Company Number: US-BAYER-2017-002139

PATIENT
  Age: 68 Year
  Sex: Male
  Weight: 54.42 kg

DRUGS (3)
  1. ALAVERT ALLERGY [Concomitant]
     Active Substance: LORATADINE
  2. CLARITIN [Suspect]
     Active Substance: LORATADINE
     Indication: NASOPHARYNGITIS
  3. CLARITIN [Suspect]
     Active Substance: LORATADINE
     Indication: HYPERSENSITIVITY
     Dosage: 1 DF, UNK
     Route: 048
     Dates: start: 20170103, end: 20170104

REACTIONS (3)
  - Product use issue [Unknown]
  - Poor quality drug administered [Unknown]
  - Drug ineffective [Unknown]
